FAERS Safety Report 5401961-4 (Version None)
Quarter: 2007Q3

REPORT INFORMATION
  Report Type: 
  Country: None (occurrence: None)
  Receive Date: 20070731
  Receipt Date: 20070723
  Transmission Date: 20080115
  Serious: Yes (Death, Life-Threatening, Hospitalization)
  Sender: FDA-Public Use
  Company Number: JP-MERCK-0705USA01166

PATIENT
  Age: 45 Year
  Sex: Male
  Weight: 56 kg

DRUGS (15)
  1. CRIXIVAN [Suspect]
     Indication: HIV INFECTION
     Route: 048
     Dates: start: 20010827, end: 20010904
  2. RETROVIR [Suspect]
     Indication: HIV INFECTION
     Route: 048
     Dates: start: 20010827, end: 20010904
  3. EPIVIR [Concomitant]
     Indication: HIV INFECTION
     Route: 048
     Dates: start: 20010827, end: 20010904
  4. DARAPRIM [Suspect]
     Indication: CEREBRAL TOXOPLASMOSIS
     Route: 048
     Dates: start: 20010825, end: 20010831
  5. DARAPRIM [Suspect]
     Route: 048
     Dates: start: 20010901, end: 20010906
  6. CLINDAMYCIN HYDROCHLORIDE [Concomitant]
     Indication: CEREBRAL TOXOPLASMOSIS
     Route: 048
     Dates: start: 20010827, end: 20010906
  7. DALACIN S [Concomitant]
     Indication: CEREBRAL TOXOPLASMOSIS
     Route: 042
     Dates: start: 20010827, end: 20010906
  8. HYDROCORTONE [Concomitant]
     Indication: BRAIN OEDEMA
     Route: 042
     Dates: start: 20010822, end: 20010824
  9. PREDNISOLONE [Concomitant]
     Indication: BRAIN OEDEMA
     Route: 048
     Dates: start: 20010825, end: 20010827
  10. PREDNISOLONE [Concomitant]
     Route: 048
     Dates: start: 20010828, end: 20010830
  11. PREDNISOLONE [Concomitant]
     Route: 048
     Dates: start: 20010831, end: 20010902
  12. PREDNISOLONE [Concomitant]
     Route: 048
     Dates: start: 20010903, end: 20010905
  13. GLYCEOL [Concomitant]
     Indication: BRAIN OEDEMA
     Route: 042
     Dates: start: 20010822, end: 20010827
  14. GLYCEOL [Concomitant]
     Route: 042
     Dates: start: 20010828, end: 20010903
  15. GLYCEOL [Concomitant]
     Route: 042
     Dates: start: 20010904, end: 20010907

REACTIONS (6)
  - ACUTE RESPIRATORY DISTRESS SYNDROME [None]
  - HISTOPLASMOSIS DISSEMINATED [None]
  - PANCYTOPENIA [None]
  - PNEUMONIA [None]
  - PYREXIA [None]
  - RENAL FAILURE ACUTE [None]
